FAERS Safety Report 8387475-0 (Version None)
Quarter: 2012Q2

REPORT INFORMATION
  Report Type: 
  Country: None (occurrence: None)
  Receive Date: 20120525
  Receipt Date: 20120521
  Transmission Date: 20120825
  Serious: Yes (Other)
  Sender: FDA-Public Use
  Company Number: PHHY2012AU044016

PATIENT
  Sex: Male

DRUGS (1)
  1. GLEEVEC [Suspect]
     Dosage: UNK UKN, UNK
     Dates: start: 20110201

REACTIONS (5)
  - LICHEN PLANUS [None]
  - MOUTH ULCERATION [None]
  - EATING DISORDER [None]
  - TONGUE ULCERATION [None]
  - STRESS [None]
